FAERS Safety Report 13510067 (Version 6)
Quarter: 2017Q4

REPORT INFORMATION
  Report Type: Report from Study
  Country: MX (occurrence: MX)
  Receive Date: 20170503
  Receipt Date: 20171025
  Transmission Date: 20180320
  Serious: Yes (Hospitalization, Other)
  Sender: FDA-Public Use
  Company Number: MX-JNJFOC-20170428784

PATIENT
  Age: 11 Year
  Sex: Female
  Weight: 45.5 kg

DRUGS (5)
  1. GOLIMUMAB [Suspect]
     Active Substance: GOLIMUMAB
     Indication: JUVENILE IDIOPATHIC ARTHRITIS
     Route: 042
     Dates: start: 20161118
  2. METHOTREXATE. [Concomitant]
     Active Substance: METHOTREXATE
     Dosage: (15MGM2SCSEM) EVERY SATURDAY
     Route: 048
     Dates: start: 20160719
  3. GOLIMUMAB [Suspect]
     Active Substance: GOLIMUMAB
     Route: 042
  4. FOLIC ACID. [Concomitant]
     Active Substance: FOLIC ACID
     Route: 048
     Dates: start: 20160719
  5. NAPROXEN. [Concomitant]
     Active Substance: NAPROXEN
     Dosage: FOR 10 DAYS, LATER IN CASE OF PAIN
     Route: 048
     Dates: start: 20160719

REACTIONS (1)
  - Sepsis [Recovered/Resolved]

NARRATIVE: CASE EVENT DATE: 20170417
